FAERS Safety Report 10662569 (Version 1)
Quarter: 2014Q4

REPORT INFORMATION
  Report Type: Spontaneous
  Country: US (occurrence: None)
  Receive Date: 20141217
  Receipt Date: 20141217
  Transmission Date: 20150529
  Serious: No
  Sender: FDA-Public Use
  Company Number: None

PATIENT
  Age: 26 Month
  Sex: Female
  Weight: 10.43 kg

DRUGS (1)
  1. CULTURELLE [Suspect]
     Active Substance: LACTOBACILLUS RHAMNOSUS
     Indication: CONSTIPATION
     Dosage: 1 PACKET/DAY
     Route: 048
     Dates: start: 20141213, end: 20141214

REACTIONS (2)
  - Flatulence [None]
  - Dermatitis diaper [None]

NARRATIVE: CASE EVENT DATE: 20141215
